FAERS Safety Report 7830826-3 (Version None)
Quarter: 2011Q4

REPORT INFORMATION
  Report Type: 
  Country: None (occurrence: None)
  Receive Date: 20111021
  Receipt Date: 20111014
  Transmission Date: 20120403
  Serious: Yes (Hospitalization)
  Sender: FDA-Public Use
  Company Number: FR-VIIV HEALTHCARE LIMITED-B0755361A

PATIENT
  Sex: Male
  Weight: 54 kg

DRUGS (3)
  1. VIRAMUNE [Concomitant]
     Indication: HIV INFECTION
     Route: 065
  2. MARAVIROC [Suspect]
     Indication: AIDS ENCEPHALOPATHY
     Dosage: 300MG TWICE PER DAY
     Route: 048
     Dates: start: 20110322
  3. KALETRA [Concomitant]
     Indication: HIV INFECTION
     Route: 065

REACTIONS (3)
  - MALAISE [None]
  - ORTHOSTATIC HYPOTENSION [None]
  - SYNCOPE [None]
